FAERS Safety Report 7208633-4 (Version None)
Quarter: 2011Q1

REPORT INFORMATION
  Report Type: 
  Country: None (occurrence: None)
  Receive Date: 20110104
  Receipt Date: 20101222
  Transmission Date: 20110831
  Serious: Yes (Other)
  Sender: FDA-Public Use
  Company Number: FI-BAYER-2010-006890

PATIENT
  Age: 41 Year
  Sex: Female

DRUGS (1)
  1. MIRENA [Suspect]
     Indication: PRODUCT USED FOR UNKNOWN INDICATION
     Dosage: 20 A?G, CONT
     Route: 015
     Dates: start: 20101220

REACTIONS (2)
  - RETINAL VASCULAR THROMBOSIS [None]
  - MIGRAINE [None]
